FAERS Safety Report 13335139 (Version 2)
Quarter: 2017Q3

REPORT INFORMATION
  Report Type: Report from Study
  Country: US (occurrence: US)
  Receive Date: 20170315
  Receipt Date: 20170711
  Transmission Date: 20171127
  Serious: No
  Sender: FDA-Public Use
  Company Number: US-AMGEN-USASL2017034504

PATIENT
  Age: 54 Year
  Sex: Male

DRUGS (1)
  1. ENBREL [Suspect]
     Active Substance: ETANERCEPT
     Indication: RHEUMATOID ARTHRITIS
     Dosage: 50 MG, QWK
     Route: 065
     Dates: start: 201612

REACTIONS (12)
  - Hypersensitivity [Unknown]
  - Injection site pruritus [Unknown]
  - Sinusitis [Not Recovered/Not Resolved]
  - Drug effect decreased [Unknown]
  - Musculoskeletal discomfort [Unknown]
  - Constipation [Unknown]
  - Injection site bruising [Unknown]
  - Wrong technique in product usage process [Unknown]
  - Drug administered at inappropriate site [Unknown]
  - Labyrinthitis [Unknown]
  - Migraine [Unknown]
  - Injection site macule [Unknown]

NARRATIVE: CASE EVENT DATE: 201612
